FAERS Safety Report 9120275 (Version 5)
Quarter: 2013Q2

REPORT INFORMATION
  Report Type: Spontaneous
  Country: US (occurrence: US)
  Receive Date: 20130226
  Receipt Date: 20130409
  Transmission Date: 20140414
  Serious: No
  Sender: FDA-Public Use
  Company Number: US-VERTEX PHARMACEUTICALS INC.-2013-002601

PATIENT
  Age: 50 Year
  Sex: Male
  Weight: 118 kg

DRUGS (4)
  1. INCIVEK [Suspect]
     Indication: HEPATITIS C
     Dosage: 750 MG, TID
     Route: 048
     Dates: start: 20130202, end: 20130304
  2. RIBAVIRIN [Suspect]
     Indication: HEPATITIS C
     Dosage: 600 MG, BID
     Route: 048
     Dates: start: 20130202, end: 20130402
  3. RIBAVIRIN [Suspect]
     Dosage: 600 MG, QD
     Route: 048
     Dates: start: 20130402
  4. PEGASYS [Suspect]
     Indication: HEPATITIS C
     Dosage: 180 ?G, QW
     Route: 058
     Dates: start: 20130202

REACTIONS (16)
  - Skin ulcer [Recovered/Resolved]
  - Insomnia [Not Recovered/Not Resolved]
  - Oropharyngeal pain [Recovered/Resolved]
  - Throat irritation [Not Recovered/Not Resolved]
  - Glossodynia [Recovered/Resolved]
  - Pharyngeal erythema [Recovered/Resolved]
  - Nasal congestion [Recovered/Resolved]
  - Tongue disorder [Recovered/Resolved]
  - Rash generalised [Recovered/Resolved]
  - Skin exfoliation [Unknown]
  - Urticaria [Recovered/Resolved]
  - Haemoglobin decreased [Not Recovered/Not Resolved]
  - Haemorrhoids [Not Recovered/Not Resolved]
  - Anorectal discomfort [Recovered/Resolved]
  - Diarrhoea [Not Recovered/Not Resolved]
  - Pruritus [Not Recovered/Not Resolved]
